FAERS Safety Report 18065585 (Version 1)
Quarter: 2020Q3

REPORT INFORMATION
  Report Type: Spontaneous
  Country: US (occurrence: US)
  Receive Date: 20200724
  Receipt Date: 20200724
  Transmission Date: 20201103
  Serious: Yes (Other)
  Sender: FDA-Public Use
  Company Number: US-MYLANLABS-2020M1066891

PATIENT
  Age: 17 Year
  Sex: Male

DRUGS (2)
  1. ARIPIPRAZOLE. [Suspect]
     Active Substance: ARIPIPRAZOLE
     Indication: AFFECTIVE DISORDER
     Dosage: 10 MILLIGRAM, QD EVERY NIGHT AT BEDTIME
     Route: 065
  2. TRAZODONE [Suspect]
     Active Substance: TRAZODONE HYDROCHLORIDE
     Indication: AFFECTIVE DISORDER
     Dosage: 100 MILLIGRAM, QD EVERY NIGHT AT BEDTIME
     Route: 065

REACTIONS (3)
  - Restless legs syndrome [Unknown]
  - Dyspnoea [Unknown]
  - Sleep-related eating disorder [Recovered/Resolved]
